FAERS Safety Report 21192033 (Version 1)
Quarter: 2022Q3

REPORT INFORMATION
  Report Type: Spontaneous
  Country: US (occurrence: US)
  Receive Date: 20220809
  Receipt Date: 20220809
  Transmission Date: 20221027
  Serious: Yes (Other)
  Sender: FDA-Public Use
  Company Number: US-NOVARTISTESTPH-NVSC2022US176447

PATIENT
  Age: 39 Year
  Sex: Female
  Weight: 67.6 kg

DRUGS (10)
  1. KISQALI [Suspect]
     Active Substance: RIBOCICLIB
     Indication: Breast cancer female
     Dosage: 600 MG, QD (TAKE 3 TABLETS BY MOUTH DAILY FOR 21 DAYS FOLLOWED BY 7 DAYS OFF FOR EACH 28 DAY CYCLE)
     Route: 048
     Dates: start: 20220617
  2. KISQALI [Suspect]
     Active Substance: RIBOCICLIB
     Dosage: 400 MG, QD
     Route: 048
     Dates: start: 20220715, end: 20220718
  3. KISQALI [Suspect]
     Active Substance: RIBOCICLIB
     Dosage: 400 MG, QD
     Route: 048
     Dates: start: 20220722
  4. ZOMETA [Concomitant]
     Active Substance: ZOLEDRONIC ACID
     Indication: Product used for unknown indication
     Dosage: 4 MG, Q3MO (EVERY 12 WEEKS)
     Route: 042
     Dates: start: 20220621
  5. ARIMIDEX [Concomitant]
     Active Substance: ANASTROZOLE
     Indication: Product used for unknown indication
     Dosage: 1 DOSAGE FORM, QD
     Route: 048
     Dates: start: 20220612
  6. ARIMIDEX [Concomitant]
     Active Substance: ANASTROZOLE
     Dosage: 1 DOSAGE FORM, QD
     Route: 048
     Dates: start: 20220617
  7. LUPRON [Concomitant]
     Active Substance: LEUPROLIDE ACETATE
     Indication: Ovarian disorder
     Dosage: 3.75 MG, ONCE/SINGLE (EVERY 4 WEEKS)
     Route: 030
     Dates: start: 20220617
  8. COENZYME Q10 [Concomitant]
     Active Substance: DIETARY SUPPLEMENT\UBIDECARENONE
     Indication: Product used for unknown indication
     Route: 065
  9. SUDAFED [Concomitant]
     Active Substance: PSEUDOEPHEDRINE HYDROCHLORIDE
     Indication: Product used for unknown indication
     Dosage: 120 MG, Q12H
     Route: 065
  10. ANASTROZOLE [Concomitant]
     Active Substance: ANASTROZOLE
     Indication: Product used for unknown indication
     Dosage: 1 MG, QD
     Route: 048
     Dates: start: 20220517

REACTIONS (16)
  - Neutropenia [Unknown]
  - Headache [Unknown]
  - Hot flush [Unknown]
  - White blood cell count decreased [Recovering/Resolving]
  - Red blood cell count decreased [Recovered/Resolved]
  - Haematocrit decreased [Recovered/Resolved]
  - Red cell distribution width increased [Unknown]
  - Mean platelet volume increased [Recovering/Resolving]
  - Lymphocyte percentage increased [Recovering/Resolving]
  - Monocyte percentage increased [Recovered/Resolved]
  - Basophil percentage increased [Unknown]
  - Haemoglobin decreased [Recovered/Resolved]
  - Platelet count decreased [Recovered/Resolved]
  - Neutrophil percentage decreased [Recovering/Resolving]
  - Eosinophil percentage decreased [Recovered/Resolved]
  - Neutrophil count decreased [Recovering/Resolving]

NARRATIVE: CASE EVENT DATE: 20220707
